FAERS Safety Report 6734081-7 (Version None)
Quarter: 2010Q2

REPORT INFORMATION
  Report Type: 
  Country: None (occurrence: None)
  Receive Date: 20100520
  Receipt Date: 20100513
  Transmission Date: 20101027
  Serious: Yes (Death, Life-Threatening)
  Sender: FDA-Public Use
  Company Number: JP-MERCK-1005USA02384

PATIENT
  Age: 88 Year
  Sex: Female

DRUGS (12)
  1. STROMECTOL [Suspect]
     Indication: DERMATITIS
     Route: 048
     Dates: start: 20090918, end: 20090918
  2. STROMECTOL [Suspect]
     Route: 048
     Dates: start: 20090925, end: 20090925
  3. STROMECTOL [Suspect]
     Route: 048
     Dates: start: 20091008, end: 20091008
  4. STROMECTOL [Suspect]
     Route: 048
     Dates: start: 20091001, end: 20091001
  5. AMLODIPINE BESYLATE [Concomitant]
     Route: 048
  6. THEO-DUR [Concomitant]
     Route: 048
  7. WARFARIN POTASSIUM [Concomitant]
     Route: 048
  8. LUPRAC [Concomitant]
     Route: 048
  9. PREDONINE [Concomitant]
     Route: 048
  10. AMOXAN [Concomitant]
     Route: 048
  11. MAGMITT [Concomitant]
     Route: 048
  12. DOXAZOSIN MESYLATE [Concomitant]
     Route: 048

REACTIONS (2)
  - DISSEMINATED INTRAVASCULAR COAGULATION [None]
  - TOXIC EPIDERMAL NECROLYSIS [None]
